FAERS Safety Report 6328696-8 (Version None)
Quarter: 2009Q3

REPORT INFORMATION
  Report Type: 
  Country: None (occurrence: None)
  Receive Date: 20090826
  Receipt Date: 20090821
  Transmission Date: 20100115
  Serious: Yes (Death, Hospitalization)
  Sender: FDA-Public Use
  Company Number: PHHY2009AU24310

PATIENT
  Sex: Female

DRUGS (4)
  1. ACLASTA [Suspect]
     Indication: OSTEOPOROSIS
     Dosage: UNK
     Dates: start: 20090526
  2. ATACAND [Concomitant]
     Dosage: 16 MG, UNK
  3. ACETAMINOPHEN [Concomitant]
  4. PERIVASC [Concomitant]
     Dosage: 10 MG, UNK

REACTIONS (3)
  - CEREBROVASCULAR ACCIDENT [None]
  - GASTROINTESTINAL HAEMORRHAGE [None]
  - ISCHAEMIA [None]
